FAERS Safety Report 17551736 (Version 3)
Quarter: 2021Q2

REPORT INFORMATION
  Report Type: Report from Study
  Country: CA (occurrence: CA)
  Receive Date: 20200317
  Receipt Date: 20210614
  Transmission Date: 20210716
  Serious: Yes (Hospitalization, Other)
  Sender: FDA-Public Use
  Company Number: PHHY2017CA043518

PATIENT
  Age: 47 Year
  Sex: Female

DRUGS (3)
  1. SANDOSTATIN LAR DEPOT [Suspect]
     Active Substance: OCTREOTIDE ACETATE
  2. SANDOSTATIN LAR DEPOT [Suspect]
     Active Substance: OCTREOTIDE ACETATE
     Indication: ACROMEGALY
     Dosage: 30 MG, Q4W
     Route: 030
     Dates: start: 20110101
  3. SANDOSTATIN LAR DEPOT [Suspect]
     Active Substance: OCTREOTIDE ACETATE

REACTIONS (13)
  - Cerebrovascular accident [Unknown]
  - Cough [Unknown]
  - Sputum discoloured [Unknown]
  - Dyspnoea [Unknown]
  - Underdose [Unknown]
  - Pelvic pain [Unknown]
  - Adrenal insufficiency [Unknown]
  - Syringe issue [Unknown]
  - Hyperthyroidism [Unknown]
  - Pain [Unknown]
  - Blood pressure increased [Unknown]
  - Gait disturbance [Unknown]
  - Injection site haemorrhage [Unknown]

NARRATIVE: CASE EVENT DATE: 20170320
